FAERS Safety Report 4860650-5 (Version None)
Quarter: 2005Q4

REPORT INFORMATION
  Report Type: 
  Country: None (occurrence: None)
  Receive Date: 20051216
  Receipt Date: 20051130
  Transmission Date: 20060501
  Serious: Yes (Other)
  Sender: FDA-Public Use
  Company Number: 2005RL000195

PATIENT
  Age: 63 Year
  Sex: Female
  Weight: 53.5244 kg

DRUGS (5)
  1. DYNACIRC [Suspect]
     Dosage: 2.5 MG; QD; PO
     Route: 048
     Dates: start: 20050601
  2. PLAVIX [Suspect]
     Dosage: 75 MG; QD;
     Dates: start: 20050601
  3. ASPIRIN [Suspect]
     Dosage: 81 MG; QD;
     Dates: start: 20050601
  4. TOPROL-XL [Suspect]
     Dosage: 50 MG; QD;
     Dates: start: 20050601
  5. LESCOL XL [Suspect]
     Dosage: 80 MG; QD;
     Dates: start: 20050601

REACTIONS (7)
  - APHTHOUS STOMATITIS [None]
  - BREAST MASS [None]
  - BREAST TENDERNESS [None]
  - DIZZINESS [None]
  - HEADACHE [None]
  - LIP ULCERATION [None]
  - MASS [None]
